FAERS Safety Report 8264505-8 (Version None)
Quarter: 2012Q2

REPORT INFORMATION
  Report Type: 
  Country: None (occurrence: None)
  Receive Date: 20120406
  Receipt Date: 20120326
  Transmission Date: 20120825
  Serious: Yes (Hospitalization, Other)
  Sender: FDA-Public Use
  Company Number: US-JNJFOC-20110811972

PATIENT
  Sex: Male

DRUGS (4)
  1. LEVAQUIN [Suspect]
     Route: 048
     Dates: start: 20020101
  2. LEVAQUIN [Suspect]
     Route: 048
     Dates: start: 20020101
  3. LEVAQUIN [Suspect]
     Indication: PERINEAL ABSCESS
     Route: 048
     Dates: start: 20051101
  4. LEVAQUIN [Suspect]
     Indication: SINUSITIS
     Route: 048
     Dates: start: 20051101

REACTIONS (4)
  - ROTATOR CUFF SYNDROME [None]
  - MENISCUS LESION [None]
  - TENDON RUPTURE [None]
  - PLANTAR FASCIITIS [None]
